FAERS Safety Report 23143981 (Version 6)
Quarter: 2024Q1

REPORT INFORMATION
  Report Type: Spontaneous
  Country: CN (occurrence: CN)
  Receive Date: 20231103
  Receipt Date: 20240122
  Transmission Date: 20240409
  Serious: Yes (Hospitalization, Other)
  Sender: FDA-Public Use
  Company Number: CN-JNJFOC-20230961865

PATIENT

DRUGS (3)
  1. INVEGA SUSTENNA [Suspect]
     Active Substance: PALIPERIDONE PALMITATE
     Indication: Schizophrenia
     Route: 030
     Dates: start: 202307
  2. INVEGA SUSTENNA [Suspect]
     Active Substance: PALIPERIDONE PALMITATE
     Route: 030
     Dates: start: 202308
  3. INVEGA SUSTENNA [Suspect]
     Active Substance: PALIPERIDONE PALMITATE

REACTIONS (9)
  - Schizophrenia [Recovering/Resolving]
  - Injection site mass [Recovering/Resolving]
  - Wound complication [Recovering/Resolving]
  - Agitation [Recovering/Resolving]
  - Injection site reaction [Not Recovered/Not Resolved]
  - Injection site ulcer [Recovering/Resolving]
  - Injection site joint effusion [Recovering/Resolving]
  - Malabsorption from injection site [Unknown]
  - Impaired healing [Unknown]

NARRATIVE: CASE EVENT DATE: 20230101
